FAERS Safety Report 15706308 (Version 1)
Quarter: 2018Q4

REPORT INFORMATION
  Report Type: Spontaneous
  Country: US (occurrence: US)
  Receive Date: 20181210
  Receipt Date: 20181210
  Transmission Date: 20190205
  Serious: No
  Sender: FDA-Public Use
  Company Number: US-BAYER-2018-227612

PATIENT
  Sex: Male
  Weight: 106 kg

DRUGS (1)
  1. MIRALAX [Suspect]
     Active Substance: POLYETHYLENE GLYCOL 3350
     Indication: DYSPEPSIA
     Dosage: UNK
     Route: 065
     Dates: start: 201802

REACTIONS (3)
  - Off label use [Unknown]
  - Product use in unapproved indication [None]
  - Product use complaint [None]

NARRATIVE: CASE EVENT DATE: 201802
